FAERS Safety Report 4330453-9 (Version None)
Quarter: 2004Q1

REPORT INFORMATION
  Report Type: 
  Country: None (occurrence: None)
  Receive Date: 20040329
  Receipt Date: 20040315
  Transmission Date: 20041129
  Serious: Yes (Life-Threatening, Hospitalization)
  Sender: FDA-Public Use
  Company Number: 205390

PATIENT
  Age: 35 Year
  Sex: Female
  Weight: 78 kg

DRUGS (3)
  1. HERCEPTIN [Suspect]
     Dosage: 140 MG, INTRAVENOUS
     Route: 042
     Dates: start: 20020101
  2. PAMIDRONATE (PAMIDRONATE) [Concomitant]
  3. ZOMETA [Concomitant]

REACTIONS (1)
  - ANAPHYLACTIC REACTION [None]
